FAERS Safety Report 10039512 (Version 1)
Quarter: 2014Q1

REPORT INFORMATION
  Report Type: Report from Study
  Country: US (occurrence: US)
  Receive Date: 20140326
  Receipt Date: 20140326
  Transmission Date: 20141002
  Serious: Yes (Death)
  Sender: FDA-Public Use
  Company Number: US-SA-2014SA036122

PATIENT
  Age: 74 Year
  Sex: Male
  Weight: 74 kg

DRUGS (5)
  1. OXALIPLATIN [Suspect]
     Indication: ADENOCARCINOMA OF COLON
     Dosage: FREQUENCY: OVER 2 HOURS A DAY; TOTAL DOSE ADMINISTERED: OVER 2 HOURS A DAY
     Route: 065
     Dates: start: 20131016, end: 20131030
  2. BLINDED THERAPY [Suspect]
     Indication: ADENOCARCINOMA OF COLON
     Dosage: TOTAL DOSE ADMINISTERED: 5200 MG
     Route: 048
     Dates: start: 20131030, end: 20131111
  3. FLUOROURACIL [Suspect]
     Indication: ADENOCARCINOMA OF COLON
     Dosage: TOTAL DOSE ADMINISTERED : 5152 MG
     Route: 042
     Dates: start: 20131016
  4. FLUOROURACIL [Suspect]
     Indication: ADENOCARCINOMA OF COLON
     Route: 042
     Dates: end: 20131030
  5. CALCIUM FOLINATE [Suspect]
     Indication: ADENOCARCINOMA OF COLON
     Dosage: FREQUENCY: OVER 2 HOURS ON DAY 1; TOTAL DOSE ADMINISTERED: 736 MG
     Route: 065
     Dates: start: 20131016, end: 20131030

REACTIONS (1)
  - Cardiac arrest [Fatal]
